FAERS Safety Report 21572508 (Version 1)
Quarter: 2022Q4

REPORT INFORMATION
  Report Type: Report from Study
  Country: US (occurrence: US)
  Receive Date: 20221109
  Receipt Date: 20221109
  Transmission Date: 20230112
  Serious: Yes (Hospitalization)
  Sender: FDA-Public Use
  Company Number: US-ABBVIE-22K-163-4486190-00

PATIENT
  Sex: Male

DRUGS (1)
  1. IMBRUVICA [Suspect]
     Active Substance: IBRUTINIB
     Indication: Waldenstrom^s macroglobulinaemia
     Route: 048
     Dates: start: 20190611

REACTIONS (7)
  - Back pain [Unknown]
  - Immunoglobulins abnormal [Unknown]
  - Road traffic accident [Unknown]
  - Pain in extremity [Unknown]
  - Platelet count decreased [Unknown]
  - Blood pressure increased [Unknown]
  - Depression [Unknown]
